FAERS Safety Report 8019307-4 (Version None)
Quarter: 2011Q4

REPORT INFORMATION
  Report Type: 
  Country: None (occurrence: None)
  Receive Date: 20111227
  Receipt Date: 20111212
  Transmission Date: 20120403
  Serious: Yes (Death, Hospitalization)
  Sender: FDA-Public Use
  Company Number: 2011AP002972

PATIENT
  Age: 40 Year
  Sex: Male

DRUGS (3)
  1. TOPIRAMATE [Suspect]
     Indication: CONVULSION
  2. METFORMIN W/ROSIGLITAZONE [Concomitant]
  3. DIVALPROEX SODIUM [Suspect]
     Indication: PRODUCT USED FOR UNKNOWN INDICATION

REACTIONS (10)
  - MYOCARDIAL ISCHAEMIA [None]
  - CARDIAC ARREST [None]
  - SUPRAVENTRICULAR TACHYCARDIA [None]
  - MYOCARDIAL INFARCTION [None]
  - HYPERTHERMIA [None]
  - UNRESPONSIVE TO STIMULI [None]
  - BUNDLE BRANCH BLOCK RIGHT [None]
  - VENTRICULAR EXTRASYSTOLES [None]
  - ATRIOVENTRICULAR BLOCK [None]
  - DRY SKIN [None]
